FAERS Safety Report 10025639 (Version 5)
Quarter: 2015Q1

REPORT INFORMATION
  Report Type: Report from Study
  Country: ZA (occurrence: ZA)
  Receive Date: 20140320
  Receipt Date: 20150320
  Transmission Date: 20150720
  Serious: Yes (Death, Other)
  Sender: FDA-Public Use
  Company Number: PHHY2014ZA032873

PATIENT
  Age: 76 Year
  Sex: Female

DRUGS (2)
  1. VALSARTAN AND HYDROCHLOROTHIAZIDE [Concomitant]
     Active Substance: HYDROCHLOROTHIAZIDE\VALSARTAN
     Indication: PRODUCT USED FOR UNKNOWN INDICATION
     Route: 065
  2. ACLASTA [Suspect]
     Active Substance: ZOLEDRONIC ACID
     Indication: OSTEOPOROSIS
     Dosage: 5 MG
     Route: 042
     Dates: start: 201305

REACTIONS (16)
  - Thermal burn [Recovering/Resolving]
  - Asthenia [Recovering/Resolving]
  - Loss of consciousness [Recovering/Resolving]
  - Rhinorrhoea [Unknown]
  - Forearm fracture [Recovering/Resolving]
  - Feeling abnormal [Recovering/Resolving]
  - Malaise [Unknown]
  - Influenza [Unknown]
  - Contusion [Recovering/Resolving]
  - Pulmonary fibrosis [Fatal]
  - PO2 abnormal [Recovering/Resolving]
  - Fall [Recovering/Resolving]
  - Pneumonia [Recovering/Resolving]
  - Limb injury [Recovering/Resolving]
  - Humerus fracture [Recovering/Resolving]
  - Hypertension [Recovering/Resolving]

NARRATIVE: CASE EVENT DATE: 201312
